FAERS Safety Report 23430435 (Version 1)
Quarter: 2024Q1

REPORT INFORMATION
  Report Type: Report from Study
  Country: US (occurrence: US)
  Receive Date: 20240123
  Receipt Date: 20240123
  Transmission Date: 20240410
  Serious: No
  Sender: FDA-Public Use
  Company Number: US-AstraZeneca-CH-00547403A

PATIENT

DRUGS (1)
  1. ULTOMIRIS [Suspect]
     Active Substance: RAVULIZUMAB-CWVZ
     Indication: Product used for unknown indication
     Dosage: UNK, Q56
     Route: 065

REACTIONS (4)
  - Eyelid ptosis [Unknown]
  - Gastrointestinal disorder [Unknown]
  - Symptom recurrence [Unknown]
  - Dysphagia [Unknown]
